FAERS Safety Report 17575007 (Version 1)
Quarter: 2020Q1

REPORT INFORMATION
  Report Type: Spontaneous
  Country: US (occurrence: US)
  Receive Date: 20200324
  Receipt Date: 20200324
  Transmission Date: 20200409
  Serious: No
  Sender: FDA-Public Use
  Company Number: US-ALEXION PHARMACEUTICALS INC.-A202003124

PATIENT
  Age: 58 Year
  Sex: Female

DRUGS (1)
  1. STRENSIQ [Suspect]
     Active Substance: ASFOTASE ALFA
     Indication: HYPOPHOSPHATASIA
     Dosage: 2 GREEN VIALS 0.80 AND 1 ORANGE VIALS 1.5, TIW
     Route: 058
     Dates: start: 201707

REACTIONS (4)
  - Rotator cuff syndrome [Unknown]
  - Erythema [Recovered/Resolved]
  - Muscle strain [Recovered/Resolved]
  - Cartilage injury [Unknown]

NARRATIVE: CASE EVENT DATE: 2017
